FAERS Safety Report 24787750 (Version 4)
Quarter: 2025Q3

REPORT INFORMATION
  Report Type: Report from Study
  Country: US (occurrence: US)
  Receive Date: 20241230
  Receipt Date: 20250709
  Transmission Date: 20251021
  Serious: Yes (Hospitalization, Other)
  Sender: UCB
  Company Number: US-UCBSA-2024067779

PATIENT
  Age: 1 Year
  Sex: Female
  Weight: 12.9 kg

DRUGS (5)
  1. FINTEPLA [Suspect]
     Active Substance: FENFLURAMINE
     Indication: Seizure
     Dosage: 7.9 MILLIGRAM, ONCE DAILY (QD)
     Dates: start: 202306
  2. FINTEPLA [Suspect]
     Active Substance: FENFLURAMINE
     Indication: Status epilepticus
     Dosage: 1.8 MILLILITER, 2X/DAY (BID)
     Route: 048
  3. FINTEPLA [Suspect]
     Active Substance: FENFLURAMINE
     Indication: Severe myoclonic epilepsy of infancy
  4. KEPPRA [Suspect]
     Active Substance: LEVETIRACETAM
     Indication: Seizure
  5. CLOBAZAM [Concomitant]
     Active Substance: CLOBAZAM
     Indication: Product used for unknown indication
     Dosage: 10 MILLIGRAM, 2X/DAY (BID)
     Route: 048

REACTIONS (13)
  - Pericardial effusion [Not Recovered/Not Resolved]
  - Cognitive disorder [Unknown]
  - Hippocampal sclerosis [Unknown]
  - Status epilepticus [Unknown]
  - Seizure [Unknown]
  - Pyrexia [Unknown]
  - Mechanical ventilation [Unknown]
  - Anxiety [Unknown]
  - Emotional distress [Unknown]
  - Agitation [Not Recovered/Not Resolved]
  - Weight decreased [Unknown]
  - Decreased appetite [Unknown]
  - Product dose omission issue [Unknown]

NARRATIVE: CASE EVENT DATE: 20230601
